FAERS Safety Report 26130809 (Version 2)
Quarter: 2025Q4

REPORT INFORMATION
  Report Type: Report from Study
  Country: CA (occurrence: CA)
  Receive Date: 20251208
  Receipt Date: 20251222
  Transmission Date: 20260118
  Serious: Yes (Death, Other)
  Sender: MYLAN
  Company Number: CA-MYLANLABS-2025M1104906

PATIENT
  Sex: Female

DRUGS (2)
  1. CLOZAPINE [Suspect]
     Active Substance: CLOZAPINE
     Indication: Psychotic disorder
     Dosage: UNK (ON OR ABOUT 24-JUN-2016)
  2. CLOZAPINE [Suspect]
     Active Substance: CLOZAPINE
     Indication: Parkinson^s disease

REACTIONS (2)
  - Asphyxia [Fatal]
  - Fall [Fatal]
